FAERS Safety Report 4860591-3 (Version None)
Quarter: 2005Q4

REPORT INFORMATION
  Report Type: 
  Country: None (occurrence: None)
  Receive Date: 20051219
  Receipt Date: 20051024
  Transmission Date: 20060501
  Serious: Yes (Hospitalization, Disabling)
  Sender: FDA-Public Use
  Company Number: US-MERCK-0510USA08770

PATIENT
  Age: 51 Year
  Sex: Male
  Weight: 91 kg

DRUGS (3)
  1. VIOXX [Suspect]
     Indication: ARTHRITIS
     Route: 048
     Dates: start: 20020207, end: 20040101
  2. IMIPRIN [Concomitant]
     Indication: PANIC ATTACK
     Route: 065
     Dates: start: 19950101
  3. XANAX [Concomitant]
     Indication: PANIC ATTACK
     Route: 065

REACTIONS (1)
  - MYOCARDIAL INFARCTION [None]
